FAERS Safety Report 25257220 (Version 5)
Quarter: 2025Q3

REPORT INFORMATION
  Report Type: Spontaneous
  Country: US (occurrence: US)
  Receive Date: 20250430
  Receipt Date: 20250916
  Transmission Date: 20251020
  Serious: Yes (Hospitalization, Disabling, Other)
  Sender: ELI LILLY AND COMPANY
  Company Number: US-ELI_LILLY_AND_COMPANY-US202504021009

PATIENT
  Age: 90 Year
  Sex: Female

DRUGS (9)
  1. ADCIRCA [Suspect]
     Active Substance: TADALAFIL
     Indication: Pulmonary arterial hypertension
     Dosage: 40 MG, DAILY
     Route: 048
     Dates: start: 202103
  2. ADCIRCA [Suspect]
     Active Substance: TADALAFIL
     Dosage: 40 MG, DAILY
     Route: 048
     Dates: start: 20230604
  3. ADCIRCA [Suspect]
     Active Substance: TADALAFIL
     Route: 065
  4. ADCIRCA [Suspect]
     Active Substance: TADALAFIL
     Route: 065
     Dates: end: 20250827
  5. AMLODIPINE [Concomitant]
     Active Substance: AMLODIPINE BESYLATE
     Indication: Product used for unknown indication
     Route: 048
  6. LASIX [Concomitant]
     Active Substance: FUROSEMIDE
     Indication: Product used for unknown indication
     Route: 048
  7. PANTOPRAZOLE [Concomitant]
     Active Substance: PANTOPRAZOLE
     Indication: Product used for unknown indication
     Route: 048
  8. METOPROLOL SUCCINATE [Concomitant]
     Active Substance: METOPROLOL SUCCINATE
     Indication: Product used for unknown indication
     Route: 048
  9. ARMOUR THYROID [Concomitant]
     Active Substance: THYROID, PORCINE
     Indication: Product used for unknown indication
     Route: 048

REACTIONS (15)
  - Renal disorder [Unknown]
  - Deafness bilateral [Unknown]
  - Middle ear effusion [Unknown]
  - Eustachian tube dysfunction [Unknown]
  - COVID-19 [Unknown]
  - Fluid retention [Unknown]
  - Mixed deafness [Unknown]
  - Tongue discomfort [Unknown]
  - Cheilitis [Unknown]
  - Sialoadenitis [Unknown]
  - Gait disturbance [Unknown]
  - Nasal dryness [Unknown]
  - Visual impairment [Unknown]
  - Upper respiratory tract infection [Unknown]
  - Blood pressure increased [Unknown]

NARRATIVE: CASE EVENT DATE: 20250101
